FAERS Safety Report 5697570-2 (Version None)
Quarter: 2008Q2

REPORT INFORMATION
  Report Type: 
  Country: None (occurrence: None)
  Receive Date: 20080408
  Receipt Date: 20080325
  Transmission Date: 20081010
  Serious: Yes (Other)
  Sender: FDA-Public Use
  Company Number: IT-GENENTECH-258529

PATIENT
  Sex: Female

DRUGS (1)
  1. HERCEPTIN [Suspect]
     Indication: BREAST CANCER
     Dosage: 384 MG, UNKNOWN
     Route: 042
     Dates: start: 20070917, end: 20070919

REACTIONS (2)
  - EJECTION FRACTION DECREASED [None]
  - PERICARDIAL EFFUSION [None]
